FAERS Safety Report 25684572 (Version 1)
Quarter: 2025Q3

REPORT INFORMATION
  Report Type: Spontaneous
  Country: US (occurrence: US)
  Receive Date: 20250815
  Receipt Date: 20250815
  Transmission Date: 20251020
  Serious: No
  Sender: ABBVIE
  Company Number: US-ABBVIE-6417045

PATIENT
  Age: 79 Year
  Sex: Male

DRUGS (1)
  1. LUPRON DEPOT [Suspect]
     Active Substance: LEUPROLIDE ACETATE
     Indication: Prostate cancer
     Route: 065

REACTIONS (9)
  - Muscle atrophy [Unknown]
  - Hot flush [Unknown]
  - Mood swings [Unknown]
  - Asthenia [Unknown]
  - Asthenia [Unknown]
  - Stress [Unknown]
  - Impatience [Unknown]
  - Anxiety [Unknown]
  - Drug ineffective [Unknown]
